FAERS Safety Report 6478526-9 (Version None)
Quarter: 2009Q4

REPORT INFORMATION
  Report Type: 
  Country: None (occurrence: None)
  Receive Date: 20091207
  Receipt Date: 20090206
  Transmission Date: 20100525
  Serious: No
  Sender: FDA-Public Use
  Company Number: US-AMGEN-KDL331467

PATIENT
  Sex: Female

DRUGS (3)
  1. ENBREL [Suspect]
     Indication: RHEUMATOID ARTHRITIS
     Route: 058
     Dates: start: 20050511
  2. PLAQUENIL [Concomitant]
     Route: 048
  3. CELEBREX [Concomitant]

REACTIONS (3)
  - ECZEMA [None]
  - OPEN WOUND [None]
  - WOUND INFECTION [None]
